FAERS Safety Report 9263035 (Version 1)
Quarter: 2013Q2

REPORT INFORMATION
  Report Type: Spontaneous
  Country: US (occurrence: None)
  Receive Date: 20130426
  Receipt Date: 20130426
  Transmission Date: 20140414
  Serious: No
  Sender: FDA-Public Use
  Company Number: None

PATIENT
  Age: 70 Year
  Sex: Female

DRUGS (1)
  1. XELODA [Suspect]

REACTIONS (4)
  - Vomiting [None]
  - Hypoaesthesia [None]
  - Paraesthesia [None]
  - Dizziness [None]
